FAERS Safety Report 10241216 (Version 4)
Quarter: 2017Q1

REPORT INFORMATION
  Report Type: Spontaneous
  Country: US (occurrence: US)
  Receive Date: 20140617
  Receipt Date: 20170213
  Transmission Date: 20170428
  Serious: Yes (Disabling, Other)
  Sender: FDA-Public Use
  Company Number: US-009507513-1406USA007816

PATIENT
  Sex: Male
  Weight: 87.53 kg

DRUGS (3)
  1. FINASTERIDE. [Suspect]
     Active Substance: FINASTERIDE
     Indication: ALOPECIA
     Dosage: TAKE 1/5 OF 5MG TAB DAILY
     Route: 048
     Dates: start: 2004, end: 2011
  2. PROPECIA [Suspect]
     Active Substance: FINASTERIDE
     Indication: ALOPECIA
     Dosage: 1 MG, QD
     Route: 048
     Dates: start: 2004, end: 2011
  3. FINASTERIDE. [Suspect]
     Active Substance: FINASTERIDE
     Dosage: TAKE 1/4 OF 5MG TAB DAILY
     Dates: start: 20110117

REACTIONS (30)
  - Anxiety [Not Recovered/Not Resolved]
  - Ejaculation failure [Not Recovered/Not Resolved]
  - Insomnia [Unknown]
  - Epididymitis [Recovering/Resolving]
  - Wrong technique in product usage process [Unknown]
  - Post inflammatory pigmentation change [Unknown]
  - Wrong technique in product usage process [Unknown]
  - Cyst removal [Unknown]
  - Varicocele [Recovering/Resolving]
  - Sexual dysfunction [Not Recovered/Not Resolved]
  - Depression [Not Recovered/Not Resolved]
  - Erectile dysfunction [Recovered/Resolved]
  - Orgasmic sensation decreased [Unknown]
  - Wisdom teeth removal [Unknown]
  - Reflux gastritis [Unknown]
  - Joint swelling [Unknown]
  - Haemangioma [Unknown]
  - Arrhythmia [Unknown]
  - Asthma [Unknown]
  - Hair transplant [Unknown]
  - Cerebral disorder [Not Recovered/Not Resolved]
  - Cognitive disorder [Not Recovered/Not Resolved]
  - Libido decreased [Not Recovered/Not Resolved]
  - Molluscum contagiosum [Recovered/Resolved]
  - Epididymal cyst [Recovering/Resolving]
  - Pruritus [Unknown]
  - Hypersensitivity [Unknown]
  - Arthralgia [Unknown]
  - Ejaculation disorder [Not Recovered/Not Resolved]
  - Bronchitis [Not Recovered/Not Resolved]

NARRATIVE: CASE EVENT DATE: 2004
